FAERS Safety Report 18727832 (Version 2)
Quarter: 2021Q4

REPORT INFORMATION
  Report Type: Spontaneous
  Country: US (occurrence: US)
  Receive Date: 20210111
  Receipt Date: 20211223
  Transmission Date: 20220303
  Serious: No
  Sender: FDA-Public Use
  Company Number: US-PFIZER INC-2021014159

PATIENT
  Age: 84 Year
  Sex: Female

DRUGS (2)
  1. VYNDAQEL [Suspect]
     Active Substance: TAFAMIDIS MEGLUMINE
     Indication: Cardiac amyloidosis
     Dosage: 80 MG
     Dates: start: 2020
  2. VYNDAQEL [Suspect]
     Active Substance: TAFAMIDIS MEGLUMINE
     Indication: Amyloidosis

REACTIONS (3)
  - Dyspnoea exertional [Not Recovered/Not Resolved]
  - Oedema peripheral [Unknown]
  - Peripheral swelling [Unknown]
